FAERS Safety Report 4862952-5 (Version None)
Quarter: 2005Q4

REPORT INFORMATION
  Report Type: 
  Country: None (occurrence: None)
  Receive Date: 20051219
  Receipt Date: 20051206
  Transmission Date: 20060501
  Serious: Yes (Other)
  Sender: FDA-Public Use
  Company Number: 2003034973

PATIENT
  Age: 79 Year
  Sex: Female
  Weight: 71.6683 kg

DRUGS (8)
  1. ACCUPRIL [Suspect]
     Indication: HYPERTENSION
     Dosage: SEE IMAGE
     Route: 048
     Dates: start: 19980101
  2. NORVASC [Suspect]
     Indication: HYPERTENSION
     Dosage: 5 MG (1 IN 1 D), ORAL
     Route: 048
     Dates: start: 20010101
  3. FLUORIDE (FLUORIDE) [Suspect]
     Indication: GINGIVAL INFECTION
     Dosage: ORAL
     Route: 048
     Dates: start: 20030101, end: 20030101
  4. ZITHROMAX [Suspect]
     Indication: GINGIVAL INFECTION
     Dosage: (DAILY), ORAL
     Route: 048
     Dates: start: 20030815
  5. TOPROL-XL [Suspect]
     Indication: BLOOD PRESSURE
  6. VITAMIN B COMPLEX CAP [Concomitant]
  7. VITAMIN C (VITAMIN C) [Concomitant]
  8. VITAMIN E [Concomitant]

REACTIONS (30)
  - BLOOD POTASSIUM DECREASED [None]
  - BLOOD PRESSURE INCREASED [None]
  - CATARACT [None]
  - CHEST PAIN [None]
  - CONDITION AGGRAVATED [None]
  - DEATH OF SPOUSE [None]
  - DIZZINESS [None]
  - DRUG INEFFECTIVE [None]
  - DYSPNOEA [None]
  - FLATULENCE [None]
  - GASTRIC DISORDER [None]
  - GASTROINTESTINAL OEDEMA [None]
  - GINGIVAL INFECTION [None]
  - HAIR COLOUR CHANGES [None]
  - INSOMNIA [None]
  - KIDNEY INFECTION [None]
  - MACULAR DEGENERATION [None]
  - MYOCARDIAL INFARCTION [None]
  - OCULAR VASCULAR DISORDER [None]
  - OEDEMA PERIPHERAL [None]
  - OVARIAN DISORDER [None]
  - PARENT-CHILD PROBLEM [None]
  - POLLAKIURIA [None]
  - RENAL DISORDER [None]
  - RENAL PAIN [None]
  - STRESS [None]
  - SWELLING FACE [None]
  - THROAT IRRITATION [None]
  - ULTRASOUND SCAN ABNORMAL [None]
  - WEIGHT INCREASED [None]
